FAERS Safety Report 6781175-6 (Version None)
Quarter: 2010Q2

REPORT INFORMATION
  Report Type: 
  Country: None (occurrence: None)
  Receive Date: 20100621
  Receipt Date: 20100609
  Transmission Date: 20101027
  Serious: Yes (Other)
  Sender: FDA-Public Use
  Company Number: JP-PFIZER INC-2010072384

PATIENT
  Sex: Female

DRUGS (1)
  1. ZITHROMAC SR [Suspect]
     Indication: PYREXIA
     Dosage: 2 G, SINGLE
     Route: 048

REACTIONS (1)
  - HYPOTHERMIA [None]
